FAERS Safety Report 4448630-5 (Version None)
Quarter: 2004Q3

REPORT INFORMATION
  Report Type: 
  Country: None (occurrence: None)
  Receive Date: 20040909
  Receipt Date: 20040909
  Transmission Date: 20050211
  Serious: No
  Sender: FDA-Public Use
  Company Number: None

PATIENT
  Age: 29 Year
  Sex: Female
  Weight: 68.0396 kg

DRUGS (2)
  1. OMNIPAQUE 300 [Suspect]
     Indication: APPENDICITIS
     Dosage: 100 ML INTRAVENOUS
     Route: 042
     Dates: start: 20040904, end: 20040904
  2. OMNIPAQUE 300 [Suspect]
     Indication: COMPUTERISED TOMOGRAM
     Dosage: 100 ML INTRAVENOUS
     Route: 042
     Dates: start: 20040904, end: 20040904

REACTIONS (2)
  - PRURITUS [None]
  - URTICARIA [None]
